FAERS Safety Report 9846046 (Version 1)
Quarter: 2013Q4

REPORT INFORMATION
  Report Type: Spontaneous
  Country: US (occurrence: None)
  Receive Date: 20131219
  Receipt Date: 20131219
  Transmission Date: 20140711
  Serious: Yes (Other)
  Sender: FDA-Public Use
  Company Number: 163-20785-13040762

PATIENT
  Age: 41 Year
  Sex: Female
  Weight: 55.34 kg

DRUGS (5)
  1. THALOMID [Suspect]
     Indication: PLASMA CELL MYELOMA
     Route: 048
     Dates: start: 20030801
  2. AMOXICILLIN [Concomitant]
  3. BABY ASPIRIN [Concomitant]
  4. PREDNISONE [Concomitant]
  5. ANTIBIOTICS [Concomitant]

REACTIONS (14)
  - Deafness [None]
  - Transient ischaemic attack [None]
  - Loss of consciousness [None]
  - Nerve injury [None]
  - Insomnia [None]
  - Tinnitus [None]
  - Lymphadenopathy [None]
  - Rash vesicular [None]
  - Fatigue [None]
  - Constipation [None]
  - Neuropathy peripheral [None]
  - Sinusitis [None]
  - Nasopharyngitis [None]
  - Dizziness [None]
